FAERS Safety Report 23751240 (Version 1)
Quarter: 2024Q2

REPORT INFORMATION
  Report Type: Spontaneous
  Country: US (occurrence: US)
  Receive Date: 20240417
  Receipt Date: 20240417
  Transmission Date: 20240716
  Serious: No
  Sender: FDA-Public Use
  Company Number: US-Nuvo Pharmaceuticals Inc-2155645

PATIENT
  Sex: Female

DRUGS (1)
  1. DEXTROAMPHETAMINE SULFATE [Suspect]
     Active Substance: DEXTROAMPHETAMINE SULFATE
     Indication: Product used for unknown indication
     Route: 065

REACTIONS (11)
  - Nausea [Unknown]
  - Product substitution issue [Unknown]
  - Product taste abnormal [Unknown]
  - Palpitations [Unknown]
  - Dysgeusia [Unknown]
  - Dry mouth [Unknown]
  - Abdominal discomfort [Unknown]
  - Irritability [Unknown]
  - Anxiety [Unknown]
  - Muscle spasms [Unknown]
  - Hyperhidrosis [Unknown]
